FAERS Safety Report 7425762-0 (Version None)
Quarter: 2011Q2

REPORT INFORMATION
  Report Type: 
  Country: None (occurrence: None)
  Receive Date: 20110420
  Receipt Date: 20110112
  Transmission Date: 20111010
  Serious: No
  Sender: FDA-Public Use
  Company Number: US-MYLANLABS-2011S1001069

PATIENT
  Age: 72 Year
  Sex: Female
  Weight: 77.11 kg

DRUGS (3)
  1. ESTROGENIC SUBSTANCE [Concomitant]
     Indication: HORMONE REPLACEMENT THERAPY
     Route: 048
     Dates: start: 19850101
  2. BUPROPION HYDROCHLORIDE [Suspect]
     Indication: DEPRESSION
     Route: 048
     Dates: start: 20070101, end: 20110111
  3. ASPIRIN [Concomitant]
     Indication: PROPHYLAXIS
     Route: 048

REACTIONS (4)
  - INSOMNIA [None]
  - HEADACHE [None]
  - DISTURBANCE IN ATTENTION [None]
  - ANXIETY [None]
